FAERS Safety Report 9801208 (Version 1)
Quarter: 2014Q1

REPORT INFORMATION
  Report Type: Spontaneous
  Country: CL (occurrence: CL)
  Receive Date: 20140107
  Receipt Date: 20140107
  Transmission Date: 20141002
  Serious: Yes (Other)
  Sender: FDA-Public Use
  Company Number: CL-PFIZER INC-2014002050

PATIENT
  Age: 73 Year
  Sex: Female

DRUGS (3)
  1. XALATAN [Suspect]
     Indication: INTRAOCULAR PRESSURE INCREASED
     Dosage: 1 DROP PER EYE
     Route: 047
     Dates: start: 2008
  2. TIMOLOL [Concomitant]
     Dosage: UNK
  3. ARTIFICIAL TEARS [Concomitant]
     Dosage: UNK

REACTIONS (6)
  - Renal failure [Not Recovered/Not Resolved]
  - Retinal vascular thrombosis [Recovered/Resolved]
  - Cataract [Recovered/Resolved]
  - Cataract operation complication [Recovered/Resolved]
  - Retinitis [Recovered/Resolved]
  - Retinopathy [Recovered/Resolved]
